FAERS Safety Report 4700720-5 (Version None)
Quarter: 2005Q2

REPORT INFORMATION
  Report Type: 
  Country: None (occurrence: None)
  Receive Date: 20050627
  Receipt Date: 20050610
  Transmission Date: 20051028
  Serious: Yes (Death, Hospitalization)
  Sender: FDA-Public Use
  Company Number: 2005000689

PATIENT
  Age: 71 Year
  Sex: Female

DRUGS (8)
  1. ERLOTINIB HCL [Suspect]
     Indication: NON-SMALL CELL LUNG CANCER
     Dosage: 150 MG (QD),ORAL
     Route: 048
     Dates: start: 20050311, end: 20050503
  2. PREDNISONE [Concomitant]
  3. THEOPHYLLINE [Concomitant]
  4. HYDROCHLOROTHIAZIDE [Concomitant]
  5. ACETYLCYSTEINE [Concomitant]
  6. SPIRULINA (SPIRULINA) [Concomitant]
  7. FLUTICASONE PROPIONATE [Concomitant]
  8. FORMOTEROL (FORMOTEROL) [Concomitant]

REACTIONS (8)
  - ABSCESS [None]
  - ANOREXIA [None]
  - DEHYDRATION [None]
  - DYSPNOEA [None]
  - NEOPLASM PROGRESSION [None]
  - RESPIRATORY FAILURE [None]
  - SYNCOPE [None]
  - TUMOUR NECROSIS [None]
